FAERS Safety Report 25806945 (Version 2)
Quarter: 2025Q4

REPORT INFORMATION
  Report Type: Spontaneous
  Country: GB (occurrence: GB)
  Receive Date: 20250916
  Receipt Date: 20251014
  Transmission Date: 20260118
  Serious: Yes (Hospitalization, Other)
  Sender: MYLAN
  Company Number: None

PATIENT
  Age: 50 Year
  Sex: Female

DRUGS (28)
  1. METFORMIN [Suspect]
     Active Substance: METFORMIN HYDROCHLORIDE
     Indication: Diabetes mellitus
     Dosage: 500 MILLIGRAM, BID (TWICE DAILY FOR 5 DAYS OF THE WEEK)
  2. METFORMIN [Suspect]
     Active Substance: METFORMIN HYDROCHLORIDE
     Dosage: 500 MILLIGRAM, BID (TWICE DAILY FOR 5 DAYS OF THE WEEK)
     Route: 065
  3. METFORMIN [Suspect]
     Active Substance: METFORMIN HYDROCHLORIDE
     Dosage: 500 MILLIGRAM, BID (TWICE DAILY FOR 5 DAYS OF THE WEEK)
     Route: 065
  4. METFORMIN [Suspect]
     Active Substance: METFORMIN HYDROCHLORIDE
     Dosage: 500 MILLIGRAM, BID (TWICE DAILY FOR 5 DAYS OF THE WEEK)
  5. VENLAFAXINE [Suspect]
     Active Substance: VENLAFAXINE HYDROCHLORIDE
     Indication: Product used for unknown indication
     Dosage: 75 MILLIGRAM, QD (MODIFIED RELEASE ONCE A DAY)
  6. VENLAFAXINE [Suspect]
     Active Substance: VENLAFAXINE HYDROCHLORIDE
     Dosage: 75 MILLIGRAM, QD (MODIFIED RELEASE ONCE A DAY)
     Route: 065
  7. VENLAFAXINE [Suspect]
     Active Substance: VENLAFAXINE HYDROCHLORIDE
     Dosage: 75 MILLIGRAM, QD (MODIFIED RELEASE ONCE A DAY)
     Route: 065
  8. VENLAFAXINE [Suspect]
     Active Substance: VENLAFAXINE HYDROCHLORIDE
     Dosage: 75 MILLIGRAM, QD (MODIFIED RELEASE ONCE A DAY)
  9. OZEMPIC [Suspect]
     Active Substance: SEMAGLUTIDE
     Indication: Product used for unknown indication
     Dosage: 1 MILLIGRAM, QW (WEEKLY)
     Route: 065
     Dates: start: 20250901
  10. OZEMPIC [Suspect]
     Active Substance: SEMAGLUTIDE
     Dosage: 1 MILLIGRAM, QW (WEEKLY)
     Dates: start: 20250901
  11. OZEMPIC [Suspect]
     Active Substance: SEMAGLUTIDE
     Dosage: 1 MILLIGRAM, QW (WEEKLY)
     Dates: start: 20250901
  12. OZEMPIC [Suspect]
     Active Substance: SEMAGLUTIDE
     Dosage: 1 MILLIGRAM, QW (WEEKLY)
     Route: 065
     Dates: start: 20250901
  13. OZEMPIC [Suspect]
     Active Substance: SEMAGLUTIDE
     Dosage: 1 MILLIGRAM, QW (WEEKLY)
     Route: 065
     Dates: start: 20250908
  14. OZEMPIC [Suspect]
     Active Substance: SEMAGLUTIDE
     Dosage: 1 MILLIGRAM, QW (WEEKLY)
     Dates: start: 20250908
  15. OZEMPIC [Suspect]
     Active Substance: SEMAGLUTIDE
     Dosage: 1 MILLIGRAM, QW (WEEKLY)
     Dates: start: 20250908
  16. OZEMPIC [Suspect]
     Active Substance: SEMAGLUTIDE
     Dosage: 1 MILLIGRAM, QW (WEEKLY)
     Route: 065
     Dates: start: 20250908
  17. MOUNJARO [Suspect]
     Active Substance: TIRZEPATIDE
     Indication: Product used for unknown indication
     Dosage: 5 MILLIGRAM, QW (WEEKLY)
     Dates: start: 20250804, end: 20250908
  18. MOUNJARO [Suspect]
     Active Substance: TIRZEPATIDE
     Dosage: 5 MILLIGRAM, QW (WEEKLY)
     Route: 065
     Dates: start: 20250804, end: 20250908
  19. MOUNJARO [Suspect]
     Active Substance: TIRZEPATIDE
     Dosage: 5 MILLIGRAM, QW (WEEKLY)
     Route: 065
     Dates: start: 20250804, end: 20250908
  20. MOUNJARO [Suspect]
     Active Substance: TIRZEPATIDE
     Dosage: 5 MILLIGRAM, QW (WEEKLY)
     Dates: start: 20250804, end: 20250908
  21. LEVOTHYROXINE [Suspect]
     Active Substance: LEVOTHYROXINE
     Indication: Product used for unknown indication
     Dosage: 25 MICROGRAM, QD (DAILY)
  22. LEVOTHYROXINE [Suspect]
     Active Substance: LEVOTHYROXINE
     Dosage: 25 MICROGRAM, QD (DAILY)
     Route: 065
  23. LEVOTHYROXINE [Suspect]
     Active Substance: LEVOTHYROXINE
     Dosage: 25 MICROGRAM, QD (DAILY)
     Route: 065
  24. LEVOTHYROXINE [Suspect]
     Active Substance: LEVOTHYROXINE
     Dosage: 25 MICROGRAM, QD (DAILY)
  25. DESOGESTREL [Suspect]
     Active Substance: DESOGESTREL
     Indication: Product used for unknown indication
     Dosage: 75 MICROGRAM, QD (DAILY)
  26. DESOGESTREL [Suspect]
     Active Substance: DESOGESTREL
     Dosage: 75 MICROGRAM, QD (DAILY)
     Route: 065
  27. DESOGESTREL [Suspect]
     Active Substance: DESOGESTREL
     Dosage: 75 MICROGRAM, QD (DAILY)
     Route: 065
  28. DESOGESTREL [Suspect]
     Active Substance: DESOGESTREL
     Dosage: 75 MICROGRAM, QD (DAILY)

REACTIONS (4)
  - Hypoaesthesia [Recovering/Resolving]
  - Sensory loss [Recovering/Resolving]
  - Paraesthesia [Recovering/Resolving]
  - Asthenia [Recovering/Resolving]

NARRATIVE: CASE EVENT DATE: 20250901
